FAERS Safety Report 4613707-8 (Version None)
Quarter: 2005Q1

REPORT INFORMATION
  Report Type: 
  Country: None (occurrence: None)
  Receive Date: 20050315
  Receipt Date: 20040920
  Transmission Date: 20050727
  Serious: Yes (Hospitalization)
  Sender: FDA-Public Use
  Company Number: 8926

PATIENT
  Age: 62 Year
  Sex: Male

DRUGS (2)
  1. METHOTREXATE [Suspect]
     Indication: RHEUMATOID ARTHRITIS
     Dosage: 5 MG WEEKLY/2.5 MG WEEKLY/NI
     Dates: start: 19901001
  2. METHOTREXATE [Suspect]
     Indication: RHEUMATOID ARTHRITIS
     Dosage: 5 MG WEEKLY/2.5 MG WEEKLY/NI
     Dates: start: 19930501

REACTIONS (5)
  - HAND DEFORMITY [None]
  - NECROSIS [None]
  - RHEUMATOID NODULE [None]
  - SYNOVIAL DISORDER [None]
  - TOE DEFORMITY [None]
